FAERS Safety Report 7509154-1 (Version None)
Quarter: 2011Q2

REPORT INFORMATION
  Report Type: 
  Country: None (occurrence: None)
  Receive Date: 20110527
  Receipt Date: 20091113
  Transmission Date: 20111010
  Serious: Yes (Death, Hospitalization, Other)
  Sender: FDA-Public Use
  Company Number: US-BAYER-2011-008363

PATIENT
  Age: 82 Year
  Sex: Female
  Weight: 57 kg

DRUGS (8)
  1. LASIX [Concomitant]
     Dosage: 40 MG EVERY 12 HRS
     Route: 042
     Dates: start: 20000313
  2. SOLU-MEDROL [Concomitant]
     Dosage: UNK
     Route: 042
     Dates: start: 20000317
  3. TRASYLOL [Suspect]
     Indication: CORONARY ARTERY BYPASS
     Dosage: PRIME: TRASYLOL - 100 ML
     Route: 042
     Dates: start: 20000317, end: 20000317
  4. CEFAZOLIN [Concomitant]
     Dosage: UNK
     Route: 042
     Dates: start: 20000317
  5. TRASYLOL [Suspect]
     Indication: AORTIC VALVE REPLACEMENT
  6. HEPARIN [Concomitant]
     Dosage: UNK
     Route: 042
     Dates: start: 20000317
  7. ACETYLSALICYLIC ACID SRT [Concomitant]
     Dosage: UNK
     Route: 048
     Dates: start: 20000313
  8. MANNITOL [Concomitant]
     Dosage: UNK
     Route: 042
     Dates: start: 20000317

REACTIONS (11)
  - RENAL FAILURE [None]
  - EMOTIONAL DISTRESS [None]
  - STRESS [None]
  - PAIN [None]
  - ANXIETY [None]
  - UNEVALUABLE EVENT [None]
  - RENAL INJURY [None]
  - DEATH [None]
  - FEAR [None]
  - INJURY [None]
  - RENAL IMPAIRMENT [None]
